FAERS Safety Report 5536895-8 (Version None)
Quarter: 2007Q4

REPORT INFORMATION
  Report Type: 
  Country: None (occurrence: None)
  Receive Date: 20071206
  Receipt Date: 20070208
  Transmission Date: 20080405
  Serious: Yes (Other)
  Sender: FDA-Public Use
  Company Number: US-AMGEN-STX210632

PATIENT
  Sex: Male

DRUGS (3)
  1. ENBREL [Suspect]
     Indication: RHEUMATOID ARTHRITIS
     Route: 058
     Dates: start: 20050601
  2. PLAQUENIL [Concomitant]
     Route: 065
  3. UNSPECIFIED ANTINEOPLASTIC AGENT [Concomitant]
     Dates: start: 20050101

REACTIONS (3)
  - NEOPLASM MALIGNANT [None]
  - PHARYNGEAL OEDEMA [None]
  - SWOLLEN TONGUE [None]
